FAERS Safety Report 17721770 (Version 2)
Quarter: 2020Q2

REPORT INFORMATION
  Report Type: Report from Study
  Country: None (occurrence: US)
  Receive Date: 20200429
  Receipt Date: 20200521
  Transmission Date: 20200714
  Serious: Yes (Other)
  Sender: FDA-Public Use
  Company Number: US-ABBVIE-20K-163-3379765-00

PATIENT
  Sex: Male

DRUGS (1)
  1. HUMIRA [Suspect]
     Active Substance: ADALIMUMAB
     Indication: CROHN^S DISEASE
     Route: 058

REACTIONS (10)
  - Bone cyst [Unknown]
  - Bite [Unknown]
  - Diabetes mellitus [Not Recovered/Not Resolved]
  - Sneezing [Unknown]
  - Pain in extremity [Unknown]
  - Headache [Unknown]
  - Joint swelling [Unknown]
  - Hypersensitivity [Unknown]
  - Erythema [Unknown]
  - Localised infection [Not Recovered/Not Resolved]

NARRATIVE: CASE EVENT DATE: 2020
